FAERS Safety Report 20360997 (Version 1)
Quarter: 2022Q1

REPORT INFORMATION
  Report Type: Other
  Country: JP (occurrence: JP)
  Receive Date: 20220121
  Receipt Date: 20220121
  Transmission Date: 20220423
  Serious: Yes (Hospitalization, Other)
  Sender: FDA-Public Use
  Company Number: JP-CHUGAI-2022000355

PATIENT
  Age: 62 Year
  Sex: Female
  Weight: 48.6 kg

DRUGS (4)
  1. ENTRECTINIB [Suspect]
     Active Substance: ENTRECTINIB
     Indication: Non-small cell lung cancer
     Dosage: 600 MILLIGRAM, QD
     Route: 041
     Dates: start: 20201223, end: 20201226
  2. ENTRECTINIB [Suspect]
     Active Substance: ENTRECTINIB
     Dosage: 400 MILLIGRAM, QD
     Route: 041
     Dates: start: 20201230, end: 20210422
  3. ENTRECTINIB [Suspect]
     Active Substance: ENTRECTINIB
     Dosage: 200 MILLIGRAM, QD
     Route: 041
     Dates: start: 20210506, end: 20211223
  4. DECADRON [Suspect]
     Active Substance: DEXAMETHASONE
     Indication: Non-small cell lung cancer
     Dosage: UNK
     Route: 065

REACTIONS (4)
  - Weight increased [Recovering/Resolving]
  - Generalised oedema [Recovering/Resolving]
  - Lower limb fracture [Unknown]
  - Bradyarrhythmia [Recovering/Resolving]

NARRATIVE: CASE EVENT DATE: 20201227
